FAERS Safety Report 23719086 (Version 2)
Quarter: 2024Q2

REPORT INFORMATION
  Report Type: Spontaneous
  Country: FR (occurrence: FR)
  Receive Date: 20240408
  Receipt Date: 20240412
  Transmission Date: 20240715
  Serious: Yes (Death)
  Sender: FDA-Public Use
  Company Number: None

PATIENT
  Sex: Female
  Weight: 1.038 kg

DRUGS (25)
  1. SUFENTANIL [Suspect]
     Active Substance: SUFENTANIL
     Indication: General anaesthesia
     Dosage: 15 MICROGRAM
     Route: 064
     Dates: start: 20230425, end: 20230425
  2. PROPOFOL [Suspect]
     Active Substance: PROPOFOL
     Indication: General anaesthesia
     Dosage: 150 MILLIGRAM
     Route: 064
     Dates: start: 20230425, end: 20230425
  3. NEFOPAM [Suspect]
     Active Substance: NEFOPAM
     Indication: General anaesthesia
     Dosage: 20 MILLIGRAM
     Route: 064
     Dates: start: 20230425, end: 20230425
  4. NOREPINEPHRINE [Suspect]
     Active Substance: NOREPINEPHRINE\NOREPINEPHRINE BITARTRATE
     Indication: General anaesthesia
     Dosage: 463 MICROGRAM
     Route: 064
     Dates: start: 20230425, end: 20230425
  5. NEOSTIGMINE [Suspect]
     Active Substance: NEOSTIGMINE
     Indication: General anaesthesia
     Dosage: 2.5 MILLIGRAM
     Route: 064
     Dates: start: 20230425, end: 20230425
  6. MIDAZOLAM [Suspect]
     Active Substance: MIDAZOLAM
     Indication: General anaesthesia
     Dosage: 1 MILLIGRAM
     Route: 064
     Dates: start: 20230425, end: 20230425
  7. LIDOCAINE [Suspect]
     Active Substance: LIDOCAINE
     Indication: General anaesthesia
     Dosage: 60 MILLIGRAM
     Route: 064
     Dates: start: 20230425, end: 20230425
  8. ATROPINE [Suspect]
     Active Substance: ATROPINE\ATROPINE SULFATE
     Indication: General anaesthesia
     Dosage: 1 MILLIGRAM
     Route: 064
     Dates: start: 20230425, end: 20230425
  9. ACETAMINOPHEN [Suspect]
     Active Substance: ACETAMINOPHEN
     Indication: General anaesthesia
     Dosage: 1 GRAM
     Route: 064
     Dates: start: 20230425, end: 20230425
  10. OXYCODONE [Suspect]
     Active Substance: OXYCODONE\OXYCODONE HYDROCHLORIDE
     Indication: General anaesthesia
     Dosage: 4 MILLIGRAM
     Route: 064
     Dates: start: 20230425, end: 20230425
  11. CLONIDINE HYDROCHLORIDE [Suspect]
     Active Substance: CLONIDINE HYDROCHLORIDE
     Indication: General anaesthesia
     Dosage: 75 MICROGRAM
     Route: 064
     Dates: start: 20230425, end: 20230425
  12. SUCCINYLCHOLINE CHLORIDE [Suspect]
     Active Substance: SUCCINYLCHOLINE CHLORIDE
     Indication: General anaesthesia
     Dosage: 60 MILLIGRAM
     Route: 064
     Dates: start: 20230425, end: 20230425
  13. ATRACURIUM [Suspect]
     Active Substance: ATRACURIUM
     Indication: General anaesthesia
     Dosage: 45 MILLIGRAM
     Route: 064
     Dates: start: 20230425, end: 20230425
  14. AUGMENTIN [Suspect]
     Active Substance: AMOXICILLIN\CLAVULANATE POTASSIUM
     Indication: General anaesthesia
     Dosage: 2 GRAM
     Route: 064
     Dates: start: 20230425, end: 20230425
  15. KETAMINE HYDROCHLORIDE [Suspect]
     Active Substance: KETAMINE HYDROCHLORIDE
     Indication: General anaesthesia
     Dosage: 70 MILLIGRAM
     Route: 064
     Dates: start: 20230425, end: 20230425
  16. MAGNESIUM SULFATE HEPTAHYDRATE [Suspect]
     Active Substance: MAGNESIUM SULFATE HEPTAHYDRATE
     Indication: General anaesthesia
     Dosage: 3 GRAM
     Route: 064
     Dates: start: 20230425, end: 20230425
  17. VISIPAQUE [Suspect]
     Active Substance: IODIXANOL
     Indication: General anaesthesia
     Dosage: 60 MILLILITER
     Route: 064
     Dates: start: 20230425, end: 20230425
  18. LEVOTHYROXINE [Concomitant]
     Active Substance: LEVOTHYROXINE\LEVOTHYROXINE SODIUM
     Dosage: UNK
     Route: 064
  19. INNOHEP [Concomitant]
     Active Substance: TINZAPARIN SODIUM
     Dosage: UNK
     Route: 064
  20. NOVORAPID [Concomitant]
     Active Substance: INSULIN ASPART
     Dosage: UNK
     Route: 064
  21. ENOXAPARIN SODIUM [Concomitant]
     Active Substance: ENOXAPARIN SODIUM
     Dosage: UNK
     Route: 064
  22. PHLOROGLUCINOL DIHYDRATE [Concomitant]
     Active Substance: PHLOROGLUCINOL DIHYDRATE
     Dosage: UNK
     Route: 064
  23. FERINJECT [Concomitant]
     Active Substance: FERRIC CARBOXYMALTOSE
     Dosage: UNK
     Route: 064
  24. TRIMEBUTINE [Concomitant]
     Active Substance: TRIMEBUTINE
     Dosage: UNK
     Route: 064
  25. LANSOPRAZOLE [Concomitant]
     Active Substance: LANSOPRAZOLE
     Dosage: UNK
     Route: 064

REACTIONS (4)
  - Schizencephaly [Fatal]
  - Cerebral haemorrhage foetal [Fatal]
  - Abortion induced [Fatal]
  - Foetal exposure during pregnancy [Unknown]

NARRATIVE: CASE EVENT DATE: 20230425
